FAERS Safety Report 10574427 (Version 1)
Quarter: 2014Q4

REPORT INFORMATION
  Report Type: Report from Study
  Country: AR (occurrence: AR)
  Receive Date: 20141110
  Receipt Date: 20141110
  Transmission Date: 20150529
  Serious: Yes (Other)
  Sender: FDA-Public Use
  Company Number: PHHY2014AR146518

PATIENT
  Sex: Female

DRUGS (3)
  1. DIOVAN [Suspect]
     Active Substance: VALSARTAN
     Indication: HYPERTENSION
     Dosage: 1 DF, QD
     Route: 048
  2. FILTEN [Concomitant]
     Indication: CARDIAC DISORDER
     Route: 065
  3. DIOVAN D [Suspect]
     Active Substance: HYDROCHLOROTHIAZIDE\VALSARTAN
     Indication: HYPERTENSION
     Dosage: 1 DF, QD
     Route: 048

REACTIONS (7)
  - Osteonecrosis [Unknown]
  - Spinal fracture [Unknown]
  - Blood pressure systolic increased [Unknown]
  - Type 2 diabetes mellitus [Unknown]
  - Spinal pain [Unknown]
  - Blood cholesterol increased [Unknown]
  - Drug ineffective [Unknown]

NARRATIVE: CASE EVENT DATE: 2013
